FAERS Safety Report 20015646 (Version 1)
Quarter: 2021Q4

REPORT INFORMATION
  Report Type: Spontaneous
  Country: US (occurrence: None)
  Receive Date: 20211101
  Receipt Date: 20211101
  Transmission Date: 20220304
  Serious: Yes (Death)
  Sender: FDA-Public Use
  Company Number: None

PATIENT
  Age: 70 Year
  Sex: Male

DRUGS (1)
  1. LUMAKRAS [Suspect]
     Active Substance: SOTORASIB
     Dosage: FREQUENCY : DAILY;?
     Route: 048
     Dates: start: 202107, end: 202110

REACTIONS (1)
  - Death [None]

NARRATIVE: CASE EVENT DATE: 20211030
